FAERS Safety Report 23244352 (Version 1)
Quarter: 2023Q4

REPORT INFORMATION
  Report Type: Spontaneous
  Country: US (occurrence: US)
  Receive Date: 20231130
  Receipt Date: 20231130
  Transmission Date: 20240109
  Serious: Yes (Other)
  Sender: FDA-Public Use
  Company Number: US-ALKEM LABORATORIES LIMITED-US-ALKEM-2023-14447

PATIENT

DRUGS (1)
  1. LIDOCAINE [Suspect]
     Active Substance: LIDOCAINE
     Indication: Product used for unknown indication
     Dosage: UNK (LIDOCAINE 4 PERCENT TOPICAL DROPS AND A 0.5 CC OF INTRACAMERAL NONPRESERVED LIDOCAINE 1 PERCENT

REACTIONS (1)
  - Blindness [Recovered/Resolved]
